FAERS Safety Report 4539233-2 (Version None)
Quarter: 2004Q4

REPORT INFORMATION
  Report Type: 
  Country: None (occurrence: None)
  Receive Date: 20041227
  Receipt Date: 20041227
  Transmission Date: 20050328
  Serious: Yes (Life-Threatening, Hospitalization)
  Sender: FDA-Public Use
  Company Number: None

PATIENT
  Age: 50 Year
  Sex: Female
  Weight: 61.6892 kg

DRUGS (2)
  1. DEPO-MEDROL [Suspect]
     Indication: INTERVERTEBRAL DISC PROTRUSION
     Dosage: EPIDURAL
     Route: 008
     Dates: start: 20040301, end: 20041221
  2. LIDOCAINE [Suspect]
     Dates: start: 20041221, end: 20041221

REACTIONS (3)
  - CARDIAC ARREST [None]
  - DIAPHRAGMATIC PARALYSIS [None]
  - PARALYSIS [None]
